FAERS Safety Report 5630302-2 (Version None)
Quarter: 2008Q1

REPORT INFORMATION
  Report Type: 
  Country: None (occurrence: None)
  Receive Date: 20080219
  Receipt Date: 20080213
  Transmission Date: 20080703
  Serious: Yes (Death)
  Sender: FDA-Public Use
  Company Number: JP-NOVOPROD-272281

PATIENT

DRUGS (3)
  1. NOVOSEVEN [Suspect]
     Indication: HAEMORRHAGE
     Dosage: 4.8 MG, UNK
     Route: 042
     Dates: start: 20080211, end: 20080211
  2. KAYTWO                             /00357701/ [Concomitant]
     Dosage: 1 UNK, UNK
     Route: 042
     Dates: start: 20080211, end: 20080211
  3. WARFARIN SODIUM [Concomitant]
     Dosage: 1.5 MG, UNK
     Route: 048
     Dates: end: 20080210

REACTIONS (1)
  - DEATH [None]
